FAERS Safety Report 6046538-5 (Version None)
Quarter: 2009Q1

REPORT INFORMATION
  Report Type: 
  Country: None (occurrence: None)
  Receive Date: 20090122
  Receipt Date: 20090114
  Transmission Date: 20090719
  Serious: Yes (Other)
  Sender: FDA-Public Use
  Company Number: US-BIOGENIDEC-2009BI001429

PATIENT
  Age: 45 Year
  Sex: Female
  Weight: 111 kg

DRUGS (10)
  1. TYSABRI [Suspect]
     Indication: MULTIPLE SCLEROSIS
     Route: 042
     Dates: start: 20070517, end: 20080326
  2. VERAPAMIL [Concomitant]
     Route: 048
  3. BACLOFEN [Concomitant]
     Indication: MUSCLE SPASTICITY
     Route: 048
  4. PAMELOR [Concomitant]
     Indication: MOOD SWINGS
     Route: 048
  5. VALTREX [Concomitant]
     Indication: ANTIVIRAL PROPHYLAXIS
     Route: 048
  6. CYMBALTA [Concomitant]
     Indication: MOOD SWINGS
     Route: 048
  7. LYRICA [Concomitant]
     Indication: NEURALGIA
     Route: 048
  8. NEXIUM [Concomitant]
     Indication: GASTROOESOPHAGEAL REFLUX DISEASE
     Route: 048
  9. ASPIRIN [Concomitant]
     Indication: PROPHYLAXIS
     Route: 048
  10. ZONEGRAN [Concomitant]
     Indication: EPILEPSY
     Route: 048

REACTIONS (1)
  - CONVULSION [None]
